FAERS Safety Report 4898813-5 (Version None)
Quarter: 2006Q1

REPORT INFORMATION
  Report Type: 
  Country: None (occurrence: None)
  Receive Date: 20060202
  Receipt Date: 20051101
  Transmission Date: 20060701
  Serious: Yes (Disabling, Other)
  Sender: FDA-Public Use
  Company Number: US-GLAXOSMITHKLINE-A0580490A

PATIENT
  Age: 73 Year
  Sex: Female
  Weight: 66.4 kg

DRUGS (4)
  1. PAXIL CR [Suspect]
     Indication: DEPRESSION
     Route: 048
     Dates: start: 20020627, end: 20050601
  2. XANAX [Concomitant]
  3. SECTRAL [Concomitant]
  4. ASPIRIN [Concomitant]

REACTIONS (10)
  - DRUG WITHDRAWAL SYNDROME [None]
  - FEELING ABNORMAL [None]
  - FLUSHING [None]
  - HYPERHIDROSIS [None]
  - LIP PAIN [None]
  - PAIN IN EXTREMITY [None]
  - PARAESTHESIA [None]
  - PHARYNGOLARYNGEAL PAIN [None]
  - SENSORY DISTURBANCE [None]
  - SOCIAL AVOIDANT BEHAVIOUR [None]
